FAERS Safety Report 17123049 (Version 3)
Quarter: 2019Q4

REPORT INFORMATION
  Report Type: Report from Study
  Country: US (occurrence: US)
  Receive Date: 20191206
  Receipt Date: 20191217
  Transmission Date: 20200122
  Serious: Yes (Other)
  Sender: FDA-Public Use
  Company Number: NVSC2019US061060

PATIENT
  Age: 34 Year
  Sex: Female
  Weight: 53.07 kg

DRUGS (1)
  1. GILENYA [Suspect]
     Active Substance: FINGOLIMOD HYDROCHLORIDE
     Indication: MULTIPLE SCLEROSIS
     Dosage: 0.5 MG, QD
     Route: 048
     Dates: start: 20191202

REACTIONS (8)
  - Anxiety [Unknown]
  - Heart rate decreased [Unknown]
  - Chest pain [Unknown]
  - Fatigue [Unknown]
  - Suffocation feeling [Unknown]
  - Dizziness [Unknown]
  - Hypotension [Unknown]
  - Chest discomfort [Unknown]

NARRATIVE: CASE EVENT DATE: 20191202
